FAERS Safety Report 8043300-9 (Version None)
Quarter: 2012Q1

REPORT INFORMATION
  Report Type: 
  Country: None (occurrence: None)
  Receive Date: 20120112
  Receipt Date: 20120110
  Transmission Date: 20120608
  Serious: Yes (Hospitalization)
  Sender: FDA-Public Use
  Company Number: US-GLAXOSMITHKLINE-A0955308A

PATIENT
  Age: 73 Year
  Sex: Male
  Weight: 79.9 kg

DRUGS (14)
  1. ZOCOR [Concomitant]
     Indication: BLOOD CHOLESTEROL
     Dosage: 40MG AT NIGHT
  2. MS CONTIN [Concomitant]
  3. COLACE [Concomitant]
  4. PREDNISONE TAB [Suspect]
     Indication: MULTIPLE MYELOMA
     Dosage: 100MG CYCLIC
     Route: 048
     Dates: start: 20110818
  5. RENVELA [Concomitant]
  6. TOPROL-XL [Concomitant]
  7. ALKERAN [Suspect]
     Indication: MULTIPLE MYELOMA
     Dosage: 12MG CYCLIC
     Route: 048
     Dates: start: 20110418
  8. FLOMAX [Concomitant]
  9. ZOVIRAX [Concomitant]
  10. VELCADE [Suspect]
     Indication: MULTIPLE MYELOMA
     Dosage: 1.3MGM2 WEEKLY
     Route: 042
     Dates: start: 20110418
  11. DILAUDID [Concomitant]
  12. AMBIEN [Concomitant]
  13. PHENERGAN [Concomitant]
  14. DELTASONE [Concomitant]

REACTIONS (1)
  - RECTAL HAEMORRHAGE [None]
